FAERS Safety Report 18449650 (Version 6)
Quarter: 2021Q2

REPORT INFORMATION
  Report Type: Spontaneous
  Country: US (occurrence: US)
  Receive Date: 20201030
  Receipt Date: 20210407
  Transmission Date: 20210717
  Serious: Yes (Other)
  Sender: FDA-Public Use
  Company Number: US-JNJFOC-20201033040

PATIENT
  Age: 55 Year
  Sex: Male
  Weight: 129.8 kg

DRUGS (19)
  1. RISPERDAL [Suspect]
     Active Substance: RISPERIDONE
     Indication: PSYCHOTIC DISORDER
     Route: 065
  2. HALOPERIDOL. [Suspect]
     Active Substance: HALOPERIDOL
     Indication: PRODUCT USED FOR UNKNOWN INDICATION
     Route: 065
  3. LIV 52 [ACHILLEA MILLEFOLIUM;CAPPARIS SPINOSA;CICHORIUM INTYBUS;SENNA [Concomitant]
     Indication: HEPATIC CANCER
     Dates: start: 2020
  4. Q?10 CO?ENZYME [Concomitant]
     Indication: MYOCARDIAL INFARCTION
  5. INVEGA SUSTENNA [Suspect]
     Active Substance: PALIPERIDONE PALMITATE
     Indication: SCHIZOAFFECTIVE DISORDER BIPOLAR TYPE
     Route: 030
     Dates: start: 202009
  6. INVEGA SUSTENNA [Suspect]
     Active Substance: PALIPERIDONE PALMITATE
  7. MORPHINE [Suspect]
     Active Substance: MORPHINE
     Indication: BIPOLAR DISORDER
     Route: 065
  8. ASPRIN [Suspect]
     Active Substance: ASPIRIN
     Indication: PRODUCT USED FOR UNKNOWN INDICATION
     Route: 065
  9. CRESTOR [Concomitant]
     Active Substance: ROSUVASTATIN CALCIUM
  10. SEROQUEL [Suspect]
     Active Substance: QUETIAPINE FUMARATE
     Indication: SCHIZOPHRENIA
     Route: 065
  11. CENTRUM [MINERALS NOS;VITAMINS NOS] [Suspect]
     Active Substance: MINERALS\VITAMINS
     Indication: PRODUCT USED FOR UNKNOWN INDICATION
     Route: 065
  12. INVEGA SUSTENNA [Suspect]
     Active Substance: PALIPERIDONE PALMITATE
  13. PRESCRIPTION EYE DROPS [Concomitant]
  14. RAMIPRIL. [Concomitant]
     Active Substance: RAMIPRIL
  15. MORPHINE [Suspect]
     Active Substance: MORPHINE
     Indication: ANXIETY
  16. VERAPAMIL [Concomitant]
     Active Substance: VERAPAMIL HYDROCHLORIDE
  17. NITROGLYCERIN. [Concomitant]
     Active Substance: NITROGLYCERIN
  18. NASAL SPRAY II [Concomitant]
  19. DEPAKOTE [Suspect]
     Active Substance: DIVALPROEX SODIUM
     Indication: PRODUCT USED FOR UNKNOWN INDICATION
     Route: 065

REACTIONS (24)
  - Adrenal gland cancer [Unknown]
  - Drug dependence [Unknown]
  - Glaucoma [Unknown]
  - Anaemia [Unknown]
  - Oedema [Unknown]
  - Sleep apnoea syndrome [Unknown]
  - Food poisoning [Unknown]
  - Palpitations [Unknown]
  - Lymphoma [Unknown]
  - Infection [Unknown]
  - Pruritus [Unknown]
  - Weight increased [Unknown]
  - Asphyxia [Unknown]
  - Diabetes mellitus [Unknown]
  - Meningitis [Unknown]
  - Renal neoplasm [Unknown]
  - Overdose [Unknown]
  - Stomatitis [Unknown]
  - Hepatic cancer [Unknown]
  - Pancreatic carcinoma [Unknown]
  - Intestinal haemorrhage [Unknown]
  - Pancreatitis [Unknown]
  - Glossitis [Unknown]
  - Anxiety [Unknown]

NARRATIVE: CASE EVENT DATE: 202009
